FAERS Safety Report 16927091 (Version 1)
Quarter: 2019Q4

REPORT INFORMATION
  Report Type: Spontaneous
  Country: GR (occurrence: GR)
  Receive Date: 20191016
  Receipt Date: 20191016
  Transmission Date: 20200122
  Serious: Yes (Hospitalization)
  Sender: FDA-Public Use
  Company Number: GR-ELI_LILLY_AND_COMPANY-GR201910004076

PATIENT
  Age: 78 Year
  Sex: Female

DRUGS (12)
  1. THYRO 4 [Concomitant]
     Indication: HYPERTHYROIDISM
     Dosage: 1 DOSAGE FORM, DAILY
  2. HUMULIN M3 30/70 [Suspect]
     Active Substance: INSULIN HUMAN
     Indication: DIABETES MELLITUS
     Dosage: 24-30 INTERNATIONAL UNIT, EACH MORNING
     Route: 058
     Dates: start: 2003
  3. IDEOS [Concomitant]
     Active Substance: CALCIUM CARBONATE\CHOLECALCIFEROL
     Indication: OSTEOPOROSIS
     Dosage: 1 DOSAGE FORM, DAILY
  4. PLATOREL [Concomitant]
     Active Substance: ROSUVASTATIN
     Indication: CORONARY ARTERY DISEASE
  5. CILROTON [Concomitant]
     Indication: CHRONIC GASTRITIS
     Dosage: 1 DOSAGE FORM, DAILY
  6. NORDEX [Concomitant]
     Indication: BLOOD PRESSURE ABNORMAL
     Dosage: 1 DOSAGE FORM, PRN
  7. GLUCOPHAGE [Suspect]
     Active Substance: METFORMIN HYDROCHLORIDE
     Dosage: 1 DOSAGE FORM, DAILY
     Route: 065
  8. NEUROBION [CYANOCOBALAMIN;PYRIDOXINE HYDROCHL [Concomitant]
     Indication: ARTERIAL DISORDER
     Dosage: 2 DOSAGE FORM, DAILY
  9. HUMULIN M3 30/70 [Suspect]
     Active Substance: INSULIN HUMAN
     Dosage: 4-10 INTERNATIONAL UNIT, DAILY AT NIGHT
     Route: 058
     Dates: start: 2003
  10. SEROPRAM [CITALOPRAM HYDROCHLORIDE] [Concomitant]
     Indication: PRODUCT USED FOR UNKNOWN INDICATION
  11. GLUCOPHAGE [Suspect]
     Active Substance: METFORMIN HYDROCHLORIDE
     Indication: DIABETES MELLITUS
     Dosage: 2 DOSAGE FORM, DAILY
     Route: 065
  12. LASIX [Concomitant]
     Active Substance: FUROSEMIDE
     Indication: BLOOD PRESSURE ABNORMAL
     Dosage: 0.5 DOSAGE FORM, PRN

REACTIONS (6)
  - Haematocrit decreased [Not Recovered/Not Resolved]
  - Blood glucose increased [Unknown]
  - Asthenia [Unknown]
  - Gastrointestinal polyp haemorrhage [Recovered/Resolved]
  - Chills [Unknown]
  - Blood glucose decreased [Recovered/Resolved]

NARRATIVE: CASE EVENT DATE: 2012
